FAERS Safety Report 9834186 (Version 2)
Quarter: 2014Q1

REPORT INFORMATION
  Report Type: Spontaneous
  Country: DK (occurrence: DK)
  Receive Date: 20140122
  Receipt Date: 20140131
  Transmission Date: 20141002
  Serious: Yes (Hospitalization)
  Sender: FDA-Public Use
  Company Number: DK-ASTELLAS-2014EU000317

PATIENT
  Age: 66 Year
  Sex: Female

DRUGS (6)
  1. PROGRAF [Suspect]
     Dosage: 1 MG, BID
     Route: 065
     Dates: start: 200606
  2. PREDNISOLON /00016201/ [Suspect]
     Indication: LIVER TRANSPLANT
     Dosage: 2.5 MG, UID/QD
     Route: 065
  3. PREDNISOLON /00016201/ [Suspect]
     Dosage: 10 MG, UNKNOWN/D
     Route: 065
  4. MYCOPHENOLAT MOFETIL ACCORD [Suspect]
     Indication: LIVER TRANSPLANT
     Dosage: 500 MG, BID
     Route: 065
  5. CALCIUM + VITAMIN D                /01483701/ [Concomitant]
     Indication: SUPPLEMENTATION THERAPY
     Dosage: 400 G, BID
     Route: 065
  6. MULTIVITAMINS [Concomitant]
     Indication: SUPPLEMENTATION THERAPY
     Dosage: UNK
     Route: 065

REACTIONS (1)
  - Tropical sprue [Recovered/Resolved]
